FAERS Safety Report 24921969 (Version 2)
Quarter: 2025Q1

REPORT INFORMATION
  Report Type: Spontaneous
  Country: US (occurrence: US)
  Receive Date: 20250204
  Receipt Date: 20250212
  Transmission Date: 20250408
  Serious: Yes (Life-Threatening, Hospitalization, Other)
  Sender: ACCORD
  Company Number: US-Accord-467262

PATIENT
  Age: 27 Year
  Sex: Female

DRUGS (6)
  1. CISPLATIN [Suspect]
     Active Substance: CISPLATIN
     Indication: Neuroendocrine carcinoma metastatic
  2. ETOPOSIDE [Suspect]
     Active Substance: ETOPOSIDE
     Indication: Neuroendocrine carcinoma metastatic
  3. DURVALUMAB [Suspect]
     Active Substance: DURVALUMAB
     Indication: Neuroendocrine carcinoma metastatic
  4. DURVALUMAB [Suspect]
     Active Substance: DURVALUMAB
     Indication: Gastroenteropancreatic neuroendocrine tumour disease
  5. CISPLATIN [Suspect]
     Active Substance: CISPLATIN
     Indication: Gastroenteropancreatic neuroendocrine tumour disease
  6. ETOPOSIDE [Suspect]
     Active Substance: ETOPOSIDE
     Indication: Gastroenteropancreatic neuroendocrine tumour disease

REACTIONS (8)
  - Hyperadrenocorticism [Recovering/Resolving]
  - Off label use [Unknown]
  - Tumour lysis syndrome [Unknown]
  - Thrombocytopenia [Unknown]
  - Ectopic ACTH syndrome [Recovering/Resolving]
  - Hypocalcaemia [Recovering/Resolving]
  - Depression [Unknown]
  - Cognitive disorder [Unknown]
